FAERS Safety Report 15439527 (Version 1)
Quarter: 2018Q3

REPORT INFORMATION
  Report Type: Spontaneous
  Country: US (occurrence: US)
  Receive Date: 20180928
  Receipt Date: 20180928
  Transmission Date: 20181010
  Serious: No
  Sender: FDA-Public Use
  Company Number: US-MACLEODS PHARMACEUTICALS US LTD-MAC2018008973

PATIENT

DRUGS (1)
  1. DONEPEZIL. [Suspect]
     Active Substance: DONEPEZIL
     Indication: AMNESIA
     Dosage: 5 MILLIGRAM, QD
     Route: 065

REACTIONS (3)
  - Insomnia [Unknown]
  - Abnormal dreams [Unknown]
  - Nightmare [Unknown]
